FAERS Safety Report 17604250 (Version 1)
Quarter: 2020Q1

REPORT INFORMATION
  Report Type: Spontaneous
  Country: BR (occurrence: BR)
  Receive Date: 20200331
  Receipt Date: 20200331
  Transmission Date: 20200409
  Serious: Yes (Other)
  Sender: FDA-Public Use
  Company Number: BR-PFIZER INC-2020130885

PATIENT
  Sex: Female

DRUGS (1)
  1. DEPO-PROVERA [Suspect]
     Active Substance: MEDROXYPROGESTERONE ACETATE
     Indication: CONTRACEPTION
     Dosage: UNK

REACTIONS (5)
  - Sciatic nerve injury [Unknown]
  - Skin erosion [Not Recovered/Not Resolved]
  - Inflammation [Unknown]
  - Skin mass [Unknown]
  - Infected cyst [Unknown]

NARRATIVE: CASE EVENT DATE: 202002
